FAERS Safety Report 4453197-1 (Version None)
Quarter: 2004Q3

REPORT INFORMATION
  Report Type: 
  Country: None (occurrence: None)
  Receive Date: 20040901
  Receipt Date: 20040730
  Transmission Date: 20050211
  Serious: Yes (Life-Threatening, Hospitalization)
  Sender: FDA-Public Use
  Company Number: US086350

PATIENT
  Age: 46 Year
  Sex: Male

DRUGS (3)
  1. ENBREL [Suspect]
     Indication: RHEUMATOID ARTHRITIS
     Dosage: 25 MG, 2 IN 1 WEEKS, SC
     Route: 058
     Dates: start: 20000101, end: 20040724
  2. ESOMEPRAZOLE MAGNESIUM [Concomitant]
  3. ACETAMINOPHEN AND OXYCODONE HCL [Concomitant]

REACTIONS (3)
  - BIOPSY BONE MARROW ABNORMAL [None]
  - BIOPSY LYMPH GLAND ABNORMAL [None]
  - PANCYTOPENIA [None]
